FAERS Safety Report 8833014 (Version 3)
Quarter: 2013Q1

REPORT INFORMATION
  Report Type: Spontaneous
  Country: US (occurrence: US)
  Receive Date: 20121010
  Receipt Date: 20130121
  Transmission Date: 20140127
  Serious: No
  Sender: FDA-Public Use
  Company Number: US-PFIZER INC-2012231601

PATIENT
  Age: 60 Year
  Sex: Female
  Weight: 107 kg

DRUGS (4)
  1. NEURONTIN [Suspect]
     Indication: FACIAL PAIN
     Dosage: 900 MG, 1X/DAY
  2. NEURONTIN [Suspect]
     Dosage: 600 MG, 2X/DAY
  3. NORVASC [Suspect]
     Indication: BLOOD PRESSURE ABNORMAL
     Dosage: 10 MG, DAILY (QD)
     Dates: start: 201208
  4. TRIBENZOR [Concomitant]

REACTIONS (3)
  - Laryngitis [Unknown]
  - Nasopharyngitis [Recovering/Resolving]
  - Weight decreased [Unknown]
